FAERS Safety Report 22263473 (Version 1)
Quarter: 2023Q2

REPORT INFORMATION
  Report Type: Spontaneous
  Country: US (occurrence: US)
  Receive Date: 20230428
  Receipt Date: 20230428
  Transmission Date: 20230721
  Serious: No
  Sender: FDA-Public Use
  Company Number: US-TARO PHARMACEUTICALS USA INC.-2022TAR00575

PATIENT

DRUGS (1)
  1. HYDROCORTISONE [Suspect]
     Active Substance: HYDROCORTISONE
     Indication: Eye disorder
     Dosage: UNK,PUT IN EYE ACCIDENTALLY THINKING IT WAS HIS EYE DROP MEDICATION
     Route: 047
     Dates: start: 20220412

REACTIONS (3)
  - Eye irritation [Not Recovered/Not Resolved]
  - Ocular discomfort [Not Recovered/Not Resolved]
  - Accidental exposure to product [Unknown]

NARRATIVE: CASE EVENT DATE: 20220412
